FAERS Safety Report 7407482-1 (Version None)
Quarter: 2011Q2

REPORT INFORMATION
  Report Type: 
  Country: None (occurrence: None)
  Receive Date: 20110412
  Receipt Date: 20110404
  Transmission Date: 20111010
  Serious: Yes (Death, Other)
  Sender: FDA-Public Use
  Company Number: NC-AMGEN-NCLSP2011018654

PATIENT
  Age: 26 Year
  Sex: Female

DRUGS (1)
  1. ENBREL [Suspect]
     Indication: PSORIATIC ARTHROPATHY
     Dosage: UNK

REACTIONS (4)
  - PSEUDOMONAS INFECTION [None]
  - LUPUS NEPHRITIS [None]
  - SEPTIC SHOCK [None]
  - CELLULITIS [None]
